FAERS Safety Report 9240100 (Version 1)
Quarter: 2013Q2

REPORT INFORMATION
  Report Type: Spontaneous
  Country: US (occurrence: US)
  Receive Date: 20130418
  Receipt Date: 20130418
  Transmission Date: 20140414
  Serious: Yes (Hospitalization)
  Sender: FDA-Public Use
  Company Number: US-PFIZER INC-2013117660

PATIENT
  Age: 9 Year
  Sex: Male
  Weight: 29.5 kg

DRUGS (7)
  1. METHYLPHENIDATE HYDROCHLORIDE [Suspect]
     Indication: ATTENTION DEFICIT/HYPERACTIVITY DISORDER
     Dosage: 5 MG, 2X/DAY
  2. CLONIDINE [Suspect]
     Indication: ATTENTION DEFICIT/HYPERACTIVITY DISORDER
     Dosage: 0.05 MG, 2X/DAY
  3. ARIPIPRAZOLE [Suspect]
     Indication: AGGRESSION
     Dosage: 2 MG, 2X/DAY
  4. DIPHENHYDRAMINE [Suspect]
     Indication: AGGRESSION
     Dosage: 25 MG, UNK
     Route: 048
  5. DIPHENHYDRAMINE [Suspect]
     Indication: AGGRESSION
     Dosage: 25 MG, UNK
     Route: 030
  6. CHLORPROMAZINE [Suspect]
     Indication: AGGRESSION
     Dosage: 25 MG, UNK
     Route: 048
  7. CHLORPROMAZINE [Suspect]
     Indication: AGGRESSION
     Dosage: 25 MG, UNK
     Route: 030

REACTIONS (3)
  - Aggression [Not Recovered/Not Resolved]
  - Lip swelling [Unknown]
  - Drug ineffective [Not Recovered/Not Resolved]
